FAERS Safety Report 5806506-2 (Version None)
Quarter: 2008Q3

REPORT INFORMATION
  Report Type: 
  Country: None (occurrence: None)
  Receive Date: 20080710
  Receipt Date: 20080701
  Transmission Date: 20090109
  Serious: Yes (Other)
  Sender: FDA-Public Use
  Company Number: BR-PFIZER INC-2008055814

PATIENT
  Sex: Female

DRUGS (1)
  1. ACCUPRIL [Suspect]
     Indication: HYPERTENSION
     Dosage: DAILY DOSE:10MG-TEXT:10 MG-FREQ:ONCE DAILY
     Route: 048

REACTIONS (5)
  - ANXIETY [None]
  - FACIAL PALSY [None]
  - HEADACHE [None]
  - MONOPLEGIA [None]
  - NAUSEA [None]
